FAERS Safety Report 8520760 (Version 5)
Quarter: 2012Q4

REPORT INFORMATION
  Report Type: 
  Country: US (occurrence: US)
  Receive Date: 20120418
  Receipt Date: 20121022
  Transmission Date: 20130627
  Serious: Yes (Other)
  Sender: FDA-Public Use
  Company Number: US-ASTRAZENECA-2012SE15233

PATIENT
  Age: 83 Year
  Sex: Male

DRUGS (2)
  1. NEXIUM [Suspect]
     Route: 048
  2. NEXIUM [Suspect]
     Route: 048

REACTIONS (5)
  - Skin cancer [Unknown]
  - Haemorrhage [Unknown]
  - Diabetes mellitus [Unknown]
  - Memory impairment [Unknown]
  - Mobility decreased [Unknown]
